FAERS Safety Report 12085522 (Version 1)
Quarter: 2016Q1

REPORT INFORMATION
  Report Type: Spontaneous
  Country: BR (occurrence: BR)
  Receive Date: 20160217
  Receipt Date: 20160217
  Transmission Date: 20160526
  Serious: Yes (Hospitalization)
  Sender: FDA-Public Use
  Company Number: BR-PFIZER INC-2016090306

PATIENT
  Age: 84 Year
  Sex: Female
  Weight: 55 kg

DRUGS (9)
  1. PURAN [Concomitant]
     Active Substance: LEVOTHYROXINE SODIUM
     Dosage: UNK
  2. NEXIUM [Concomitant]
     Active Substance: ESOMEPRAZOLE MAGNESIUM
     Dosage: UNK
  3. BRILINTA [Concomitant]
     Active Substance: TICAGRELOR
     Dosage: UNK
  4. APRESOLINE HYDROCHLORIDE [Concomitant]
     Active Substance: HYDRALAZINE HYDROCHLORIDE
     Dosage: UNK
  5. EFFEXOR XR [Suspect]
     Active Substance: VENLAFAXINE HYDROCHLORIDE
     Indication: ANXIETY
  6. ADDERA D3 [Concomitant]
     Active Substance: CHOLECALCIFEROL
     Dosage: UNK
  7. LASIX [Concomitant]
     Active Substance: FUROSEMIDE
  8. ALDACTONE [Suspect]
     Active Substance: SPIRONOLACTONE
  9. VASTAREL [Concomitant]
     Active Substance: TRIMETAZIDINE DIHYDROCHLORIDE
     Dosage: UNK

REACTIONS (3)
  - Cerebrovascular accident [Unknown]
  - Infarction [Unknown]
  - Cardiac failure [Unknown]
